FAERS Safety Report 6540112-X (Version None)
Quarter: 2010Q1

REPORT INFORMATION
  Report Type: 
  Country: None (occurrence: None)
  Receive Date: 20100115
  Receipt Date: 20100108
  Transmission Date: 20100710
  Serious: Yes (Hospitalization)
  Sender: FDA-Public Use
  Company Number: GB-JNJFOC-20071102875

PATIENT
  Age: 58 Year
  Sex: Female
  Weight: 60 kg

DRUGS (12)
  1. INFLIXIMAB [Suspect]
     Route: 042
  2. INFLIXIMAB [Suspect]
     Indication: RHEUMATOID ARTHRITIS
     Route: 042
  3. HUMIRA [Suspect]
     Indication: DRUG USE FOR UNKNOWN INDICATION
  4. METHOTREXATE [Concomitant]
     Indication: RHEUMATOID ARTHRITIS
     Route: 048
  5. CYCLIZINE [Concomitant]
  6. FOLIC ACID [Concomitant]
  7. MESALAZINE [Concomitant]
  8. METOCLOPRAMIDE [Concomitant]
  9. OMEPRAZOLE [Concomitant]
  10. ACETAMINOPHEN AND CODEINE PHOSPHATE [Concomitant]
  11. VITAMIN B-12 [Concomitant]
  12. ZOPICLONE [Concomitant]

REACTIONS (1)
  - LISTERIA SEPSIS [None]
